FAERS Safety Report 14582954 (Version 2)
Quarter: 2018Q1

REPORT INFORMATION
  Report Type: Spontaneous
  Country: US (occurrence: US)
  Receive Date: 20180228
  Receipt Date: 20180308
  Transmission Date: 20180509
  Serious: Yes (Other)
  Sender: FDA-Public Use
  Company Number: US-SA-2018SA049298

PATIENT
  Sex: Female

DRUGS (1)
  1. ICY HOT VANISHING SCENT [Suspect]
     Active Substance: MENTHOL
     Route: 065

REACTIONS (5)
  - Swelling face [Recovered/Resolved]
  - Loss of consciousness [Not Recovered/Not Resolved]
  - Hypersensitivity [Unknown]
  - Nausea [Unknown]
  - Fall [Unknown]

NARRATIVE: CASE EVENT DATE: 20180213
